FAERS Safety Report 9796201 (Version 3)
Quarter: 2014Q1

REPORT INFORMATION
  Report Type: Spontaneous
  Country: JP (occurrence: JP)
  Receive Date: 20140103
  Receipt Date: 20140130
  Transmission Date: 20141002
  Serious: Yes (Other)
  Sender: FDA-Public Use
  Company Number: JP-UCBSA-107676

PATIENT
  Age: 78 Year
  Sex: Male

DRUGS (6)
  1. NEUPRO [Suspect]
     Indication: PARKINSON^S DISEASE
     Route: 061
     Dates: start: 20131129, end: 20131209
  2. OLANZAPINE [Concomitant]
     Dosage: DAILY DOSE: 10 MG
  3. LEVODOPA/ CARBIDOPA HYDRATE [Concomitant]
     Dosage: DAILY DOSE : 300 MG
  4. BROTIZOLAM [Concomitant]
     Dosage: DAILY DOSE: 0.25 MG
  5. PIRENOXINE [Concomitant]
  6. LEVOFLOXACIN HYDRATE [Concomitant]

REACTIONS (1)
  - Liver disorder [Recovered/Resolved]
